FAERS Safety Report 13901186 (Version 1)
Quarter: 2017Q3

REPORT INFORMATION
  Report Type: Report from Study
  Country: None (occurrence: US)
  Receive Date: 20170824
  Receipt Date: 20170824
  Transmission Date: 20171127
  Serious: Yes (Other)
  Sender: FDA-Public Use
  Company Number: US-ABBVIE-17K-163-1983143-00

PATIENT
  Age: 56 Year
  Sex: Female
  Weight: 68.1 kg

DRUGS (4)
  1. AMLODIPINE [Concomitant]
     Active Substance: AMLODIPINE BESYLATE
     Indication: HYPERTENSION
  2. VITAMIN D [Concomitant]
     Active Substance: CHOLECALCIFEROL
     Indication: PRODUCT USED FOR UNKNOWN INDICATION
  3. HUMIRA [Suspect]
     Active Substance: ADALIMUMAB
     Indication: RHEUMATOID ARTHRITIS
     Route: 058
     Dates: start: 2014, end: 20170308
  4. SERTRALINE [Concomitant]
     Active Substance: SERTRALINE HYDROCHLORIDE
     Indication: ANXIETY

REACTIONS (12)
  - Blood creatinine increased [Recovered/Resolved]
  - Uterine leiomyoma [Not Recovered/Not Resolved]
  - Hydronephrosis [Recovered/Resolved]
  - Thirst [Recovering/Resolving]
  - Neoplasm malignant [Recovering/Resolving]
  - Fatigue [Recovering/Resolving]
  - Ovarian mass [Recovering/Resolving]
  - Blood creatinine increased [Recovered/Resolved]
  - Adnexa uteri mass [Recovering/Resolving]
  - Muscle spasms [Recovered/Resolved]
  - Cervical dysplasia [Not Recovered/Not Resolved]
  - Hodgkin^s disease [Recovering/Resolving]

NARRATIVE: CASE EVENT DATE: 2017
